FAERS Safety Report 9898448 (Version 9)
Quarter: 2014Q3

REPORT INFORMATION
  Report Type: Spontaneous
  Country: US (occurrence: US)
  Receive Date: 20140214
  Receipt Date: 20140722
  Transmission Date: 20150326
  Serious: Yes (Hospitalization, Other)
  Sender: FDA-Public Use
  Company Number: US-009507513-1203USA02824

PATIENT
  Sex: Female
  Weight: 88.44 kg

DRUGS (4)
  1. FOSAMAX [Suspect]
     Active Substance: ALENDRONATE SODIUM
     Indication: OSTEOPOROSIS
     Dosage: 70 MG, QW
     Route: 048
     Dates: start: 20040121, end: 20070423
  2. ALENDRONATE SODIUM. [Suspect]
     Active Substance: ALENDRONATE SODIUM
     Indication: PRODUCT USED FOR UNKNOWN INDICATION
     Route: 048
  3. FOSAMAX [Suspect]
     Active Substance: ALENDRONATE SODIUM
     Dosage: UNK
     Route: 048
     Dates: start: 1983, end: 1985
  4. FOSAMAX [Suspect]
     Active Substance: ALENDRONATE SODIUM
     Dosage: UNK
     Route: 048

REACTIONS (32)
  - Intramedullary rod insertion [Unknown]
  - Fall [Unknown]
  - Osteoporosis [Unknown]
  - Stress [Unknown]
  - Gastrooesophageal reflux disease [Unknown]
  - Spinal deformity [Unknown]
  - Intraocular lens implant [Unknown]
  - Joint injury [Unknown]
  - Spinal osteoarthritis [Unknown]
  - Vertebroplasty [Unknown]
  - Hypoxia [Unknown]
  - Spinal compression fracture [Unknown]
  - Cardiomegaly [Unknown]
  - Sleep apnoea syndrome [Unknown]
  - Peripheral swelling [Unknown]
  - Spondylolysis [Unknown]
  - Balance disorder [Unknown]
  - Loss of consciousness [Unknown]
  - Knee arthroplasty [Unknown]
  - Spinal compression fracture [Unknown]
  - Spinal epidural haematoma [Unknown]
  - Osteopenia [Unknown]
  - Adverse drug reaction [Unknown]
  - Varicose vein [Unknown]
  - Hiatus hernia [Unknown]
  - Large intestine polyp [Unknown]
  - Femur fracture [Unknown]
  - Osteoarthritis [Unknown]
  - Atelectasis [Unknown]
  - Cough [Unknown]
  - Pulmonary mass [Unknown]
  - Musculoskeletal pain [Unknown]

NARRATIVE: CASE EVENT DATE: 2004
